FAERS Safety Report 6364980-X (Version None)
Quarter: 2009Q3

REPORT INFORMATION
  Report Type: 
  Country: None (occurrence: None)
  Receive Date: 20090919
  Receipt Date: 20090804
  Transmission Date: 20100115
  Serious: No
  Sender: FDA-Public Use
  Company Number: US-ABBOTT-09P-163-0589682-00

PATIENT
  Sex: Female
  Weight: 54.48 kg

DRUGS (8)
  1. HUMIRA [Suspect]
     Indication: CROHN'S DISEASE
     Dates: start: 20080301
  2. VITAMIN B-12 [Concomitant]
     Indication: VITAMIN B COMPLEX DEFICIENCY
     Route: 050
  3. YASMIN [Concomitant]
     Indication: CONTRACEPTION
  4. AMBIEN [Concomitant]
     Indication: INSOMNIA
  5. XANAX [Concomitant]
     Indication: ANXIETY
  6. ULTRAM [Concomitant]
     Indication: ARTHRALGIA
  7. MULTI-VITAMIN [Concomitant]
     Indication: DRUG USE FOR UNKNOWN INDICATION
  8. FISH OIL [Concomitant]
     Indication: DRUG USE FOR UNKNOWN INDICATION

REACTIONS (5)
  - INJECTION SITE ERYTHEMA [None]
  - INJECTION SITE INDURATION [None]
  - INJECTION SITE PAIN [None]
  - INJECTION SITE PRURITUS [None]
  - INJECTION SITE SWELLING [None]
